FAERS Safety Report 5009489-0 (Version None)
Quarter: 2006Q2

REPORT INFORMATION
  Report Type: 
  Country: None (occurrence: None)
  Receive Date: 20060522
  Receipt Date: 20060420
  Transmission Date: 20061013
  Serious: Yes (Other)
  Sender: FDA-Public Use
  Company Number: 6022261

PATIENT
  Sex: Male

DRUGS (5)
  1. AMNESTEEM [Suspect]
     Indication: ACNE CYSTIC
     Dosage: 5,7143 MG, 1 IN 1 WK, ORAL
     Route: 048
     Dates: start: 20010101, end: 20060407
  2. CYCLOSPORINE [Concomitant]
  3. IMURAN [Concomitant]
  4. PREDNISONE [Concomitant]
  5. ENALAPRIL MALEATE [Concomitant]

REACTIONS (1)
  - BLOOD TRIGLYCERIDES INCREASED [None]
